FAERS Safety Report 23159937 (Version 1)
Quarter: 2023Q4

REPORT INFORMATION
  Report Type: Spontaneous
  Country: DE (occurrence: DE)
  Receive Date: 20231108
  Receipt Date: 20231108
  Transmission Date: 20240110
  Serious: Yes (Hospitalization)
  Sender: FDA-Public Use
  Company Number: DE-BAXTER-2023BAX029888

PATIENT
  Age: 76 Year
  Sex: Male
  Weight: 78 kg

DRUGS (51)
  1. DEXTROSE [Suspect]
     Active Substance: DEXTROSE\DEXTROSE MONOHYDRATE
     Indication: Parenteral nutrition
     Dosage: AT AN UNSPECIFIED DOSE ONCE IN THE MORNING AS SHORT INFUSION
     Route: 042
  2. UNSPECIFIED INGREDIENT [Suspect]
     Active Substance: UNSPECIFIED INGREDIENT
     Indication: Parenteral nutrition
     Dosage: (DOSAGE FORM: SOLUTION) (COMBINATION PREPARATION) 1000 ML ONCE IN THE MORNING DAILY RUN OVER 4-5 H
     Route: 042
  3. AMINO ACIDS\DEXTROSE\ELECTROLYTES NOS\SOYBEAN OIL [Suspect]
     Active Substance: AMINO ACIDS\DEXTROSE\ELECTROLYTES NOS\SOYBEAN OIL
     Indication: Parenteral nutrition
     Dosage: 2200 KCAL FOR 24 H (MON-FRI) (PERIOPERATIVELY)
     Route: 042
  4. FRESUBIN [Suspect]
     Active Substance: AMINO ACIDS\DEXTROSE\ELECTROLYTES NOS\SOYBEAN OIL\VITAMINS
     Indication: Product used for unknown indication
     Dosage: (ENERGY DRINK MIXED CARTON DRINKING BOTTLE) (DOSAGE FORM: SOLUTION) 2 TIMES DAILY?ROUTE OF ADMIN. :
  5. FENTANYL [Suspect]
     Active Substance: FENTANYL\FENTANYL CITRATE
     Indication: Product used for unknown indication
     Dosage: 12.5 MICROGRAM PER HOUR, PLEASE DISCONTINUE
     Route: 065
     Dates: end: 20230814
  6. FENTANYL [Suspect]
     Active Substance: FENTANYL\FENTANYL CITRATE
     Dosage: (1A PHARMA 12 UG/H MATRIXPFL 2.89MG/PF) (DOSAGE FORM: PATCH) CHANGE EVRY 3 DAYS
     Route: 065
  7. FENTANYL [Suspect]
     Active Substance: FENTANYL\FENTANYL CITRATE
     Dosage: (1A PHARMA 25 UG/H MATRIXPFL 5.78 MG/PF) (DOSAGE FORM: PATCH) CHANGE EVERY 3 DAYS
     Route: 065
  8. FENTANYL [Suspect]
     Active Substance: FENTANYL\FENTANYL CITRATE
     Dosage: (OUTLET TRIAL WITH FENTANYL PATCH)
     Route: 065
  9. ELECTROLYTES NOS\MINERALS [Suspect]
     Active Substance: ELECTROLYTES NOS\MINERALS
     Indication: Parenteral nutrition
     Dosage: (MANUFACTURER: LABORATOIRE AGUETTANT S.A.S.) AT AN UNSPECIFIED DOSE ONCE IN THE MORNING AS SHORT INF
     Route: 042
  10. PROMETHAZINE [Suspect]
     Active Substance: PROMETHAZINE HYDROCHLORIDE
     Indication: Product used for unknown indication
     Dosage: (NEURAXPHARM) 10 DROPS AT NIGHT (DOSAGE FORM: DROP) (STRENGTH: 20 MG)
  11. SODIUM PICOSULFATE [Suspect]
     Active Substance: SODIUM PICOSULFATE
     Indication: Laxative supportive care
     Dosage: (LAXATIVE) FROM 3 DAY NO BOVEL MOVEMENT 18 DROPS (DOSAGE FORM: DROPS)) (STRENGTH: 7.5 MG)
  12. AMINO ACIDS\DEXTROSE\ELECTROLYTES NOS\SOYBEAN OIL [Suspect]
     Active Substance: AMINO ACIDS\DEXTROSE\ELECTROLYTES NOS\SOYBEAN OIL
     Indication: Parenteral nutrition
     Dosage: UNK
  13. TAVOR (LORAZEPAM) [Suspect]
     Active Substance: LORAZEPAM
     Indication: Product used for unknown indication
     Dosage: (DOSAGE FORM: MELTING TABLETS)
  14. LEVOTHYROXINE SODIUM [Suspect]
     Active Substance: LEVOTHYROXINE SODIUM
     Indication: Product used for unknown indication
     Dosage: 50 MICROGRAM (50 HENNING) ONE PIECE IN THE MORNING
     Route: 048
  15. BISOPROLOL [Suspect]
     Active Substance: BISOPROLOL\BISOPROLOL FUMARATE
     Indication: Product used for unknown indication
     Dosage: 1.25 MG PIECE ONCE IN THE EVENING
     Route: 048
  16. METFORMIN [Suspect]
     Active Substance: METFORMIN HYDROCHLORIDE
     Indication: Product used for unknown indication
     Dosage: 1000 MG (1 A PHARMA) PIECE ONE IN THE MORNING AND ONE IN THE NIGHT
     Route: 048
  17. ASPIRIN [Suspect]
     Active Substance: ASPIRIN
     Indication: Product used for unknown indication
     Dosage: 100 MG (1X1), PIECE ONCE IN THE MORNING AND ONCE IN THE NIGHT
     Route: 048
  18. MOVICOL [Suspect]
     Active Substance: POLYETHYLENE GLYCOL 3350\POTASSIUM CHLORIDE\SODIUM BICARBONATE\SODIUM CHLORIDE
     Indication: Product used for unknown indication
     Dosage: (BAG) (DOSAGE FORM: POWDER) 1 BAG IN THE MORNING
  19. METAMIZOLE [Suspect]
     Active Substance: METAMIZOLE
     Indication: Product used for unknown indication
     Dosage: (1 A PHARMA) EVERY 6 HOURS (DOSAGE FORM: DROP) (STRENGTH: 443.09 MG)
  20. SODIUM CITRATE\SODIUM LAURYL SULFOACETATE [Suspect]
     Active Substance: SODIUM CITRATE\SODIUM LAURYL SULFOACETATE
     Indication: Product used for unknown indication
     Dosage: (RECTAL SOLUTION ENEMAS) (120.26) (STRENGTH: 64.5 MG)
  21. ENOXAPARIN SODIUM [Suspect]
     Active Substance: ENOXAPARIN SODIUM
     Indication: Product used for unknown indication
     Dosage: 0.4 MG ONCE IN THE MORNING AND ONCE IN THE NIGHT, DISCONTINUE IF SUFFICIENT MOBILIZATION
  22. VITAMIN D3 [Suspect]
     Active Substance: CHOLECALCIFEROL
     Indication: Product used for unknown indication
     Dosage: DROP ONCE IN THE MORNING, ONCE IN THE NOON AND ONCE IN THE NIGHT (BREAK)
  23. VITAMIN D3 [Suspect]
     Active Substance: CHOLECALCIFEROL
     Dosage: 1 X 4 DAILY (DOSAGE FORM: DROP)
  24. VITAMIN D3 [Suspect]
     Active Substance: CHOLECALCIFEROL
     Dosage: 4 DROPS DAILY (= 4.000 INTERNATIONAL UNITS) (DOSGE FORM: LIQUID)
  25. CERNEVIT [Suspect]
     Active Substance: VITAMINS
     Indication: Parenteral nutrition
     Dosage: AT AN UNSPECIFIED DOSE ONCE IN THE MORNING AS SHORT INFUSION
     Route: 042
  26. MAGNESIUM [Suspect]
     Active Substance: MAGNESIUM
     Indication: Product used for unknown indication
     Dosage: (300) PIECE ONCE IN THE NOON (BREAK)
  27. MAGNESIUM [Suspect]
     Active Substance: MAGNESIUM
     Dosage: 300 MG ONCE IN THE NIGHT
     Route: 048
  28. PANCRELIPASE [Suspect]
     Active Substance: PANCRELIPASE
     Indication: Product used for unknown indication
     Dosage: (PANCREAS POWDER FROM PIG) (25000) PIECE ONCE IN THE MORNING, ONCE IN THE NOON, ONCE IN THE EVENING
  29. PANCRELIPASE [Suspect]
     Active Substance: PANCRELIPASE
     Dosage: 25000 INTERNATIONAL UNITS, ONCE IN THE MORNING, ONCE IN THE AFTERNOON AND ONCE IN THE NIGHT 1-1-1, I
  30. PANCRELIPASE [Suspect]
     Active Substance: PANCRELIPASE
     Dosage: (PANCREAS POWDER FROM PIG) (25000) PIECE ONCE IN THE MORNING, ONCE IN THE NOON AND ONCE IN THE EVENI
  31. ABSTRAL [Suspect]
     Active Substance: FENTANYL CITRATE
     Indication: Breakthrough pain
     Dosage: 100 MICROGRAM PIECE
  32. ACTRAPID [Suspect]
     Active Substance: INSULIN HUMAN
     Indication: Product used for unknown indication
     Dosage: (INSULIN) (ACCORDING TO PLAN)
     Route: 058
  33. OXYCODONE [Suspect]
     Active Substance: OXYCODONE
     Indication: Product used for unknown indication
     Dosage: (RET.) 5 MG (IF NEEDED: 1 PIECE IN CASE OF PAIN. PER INTAKE, MAX. EVERY 24 H 3.PCS.)
     Route: 048
  34. DEXPANTHENOL [Suspect]
     Active Substance: DEXPANTHENOL
     Indication: Product used for unknown indication
     Dosage: (DOSAGE FORM: EYE AND NOSE OINTMENT) (STRENGTH: 0.05 G) SINGLE DOSE ONCE IN THE EVENING
  35. DEXPANTHENOL [Suspect]
     Active Substance: DEXPANTHENOL
     Dosage: (DOSAGE FORM: EYE OINTMENT) ONCE IN THE NIGHT
  36. ROBINUL [Suspect]
     Active Substance: GLYCOPYRROLATE
     Indication: Product used for unknown indication
     Dosage: (INJECTION 0.2 MG/ML SOLUTION FOR INJECTION) (DOSAGE FORM: SOLUTION)
  37. MORPHINE [Suspect]
     Active Substance: MORPHINE
     Indication: Product used for unknown indication
     Dosage: (HAMELN 10 MG INJECTION SOLUTION) (DOSAGE FORM: SOLUTION)
  38. ESOMEPRAZOLE [Suspect]
     Active Substance: ESOMEPRAZOLE
     Indication: Product used for unknown indication
     Dosage: 40 MG PIECE ONCE IN THE AFTERNOON
  39. FERRO-SANOL DUODENAL [Suspect]
     Active Substance: FERROUS GLYCINE SULFATE
     Indication: Product used for unknown indication
     Dosage: 100 MG (1 X 1)
     Route: 048
  40. VITAMIN B COMPLEX [Suspect]
     Active Substance: CYANOCOBALAMIN\DEXPANTHENOL\NIACINAMIDE\PYRIDOXINE HYDROCHLORIDE\RIBOFLAVIN 5^-PHOSPHATE SODIUM\THIA
     Indication: Product used for unknown indication
     Dosage: PIECE ONCE IN THE MORNING (BREAK)
     Route: 048
  41. PANTOPRAZOLE [Concomitant]
     Active Substance: PANTOPRAZOLE
     Indication: Product used for unknown indication
     Dosage: 40 MG TWICE DAILY (1-0-1)
     Route: 065
  42. PREDNISOLONE [Concomitant]
     Active Substance: PREDNISOLONE
     Indication: Product used for unknown indication
     Dosage: 10 MG/DAY
  43. PREDNISOLONE [Concomitant]
     Active Substance: PREDNISOLONE
     Dosage: IN AUG-2021 RECURRENCE AND INITIAL START OF PREDNISOLONE MONOTHERAPY (IN SEP-2021 THERAPY EXTENSION
  44. PREDNISOLONE [Concomitant]
     Active Substance: PREDNISOLONE
     Dosage: (DUE TO THE ONGOING REMISSION REDUCED THE PREDNISOLONE FROM 10 MG/DAY TO 5 MG/DAY, THIS DOSAGE WAS M
     Dates: start: 20230201
  45. PREDNISOLONE [Concomitant]
     Active Substance: PREDNISOLONE
     Dosage: CURRENTLY 5 MG/DAY (5 MG ONCE IN THE MORNING)
  46. PREDNISOLONE [Concomitant]
     Active Substance: PREDNISOLONE
     Dosage: 5 MG (GALEN) PIECE ONCE IN THE NIGHT
     Route: 048
  47. SULFASALAZINE [Concomitant]
     Active Substance: SULFASALAZINE
     Indication: Product used for unknown indication
  48. FOLIC ACID [Concomitant]
     Active Substance: FOLIC ACID
     Indication: Product used for unknown indication
     Dosage: 10 MG/WEEK (24 HOURS AFTER MTX INTAKE) (CURRENTLY PAUSED)
  49. METHOTREXATE [Concomitant]
     Active Substance: METHOTREXATE
     Indication: Product used for unknown indication
     Dosage: 15 MG/WEEK (AS PEN) (CURRENTLY PAUSED SINCE 09-JUL-2021)
     Route: 058
  50. PREDNISONE [Concomitant]
     Active Substance: PREDNISONE
     Indication: Product used for unknown indication
     Dosage: (2 MG M ALTERED. ACTIVE INGREDIENT RELEASE) (NOTES: 1 X1 TABLET 10 PM) (FORM: RETTABL)
  51. PREDNISONE [Concomitant]
     Active Substance: PREDNISONE
     Dosage: 5 MG Z. N

REACTIONS (10)
  - General physical health deterioration [None]
  - Drug hypersensitivity [None]
  - Dehiscence [None]
  - Tachycardia [None]
  - Body temperature increased [None]
  - Abscess [Recovering/Resolving]
  - Blood pressure decreased [None]
  - Chills [None]
  - Drug intolerance [None]
  - Diarrhoea [None]
